FAERS Safety Report 21628504 (Version 1)
Quarter: 2022Q4

REPORT INFORMATION
  Report Type: Spontaneous
  Country: US (occurrence: None)
  Receive Date: 20221121
  Receipt Date: 20221121
  Transmission Date: 20230112
  Serious: Yes (Hospitalization, Disabling, Other)
  Sender: FDA-Public Use
  Company Number: None

PATIENT
  Age: 33 Year
  Sex: Male
  Weight: 74.25 kg

DRUGS (5)
  1. XANAX [Suspect]
     Active Substance: ALPRAZOLAM
     Indication: Anxiety
  2. KLONOPIN [Suspect]
     Active Substance: CLONAZEPAM
  3. GABAPENTIN [Concomitant]
     Active Substance: GABAPENTIN
  4. PROPRANOLOL HYDROCHLORIDE [Concomitant]
     Active Substance: PROPRANOLOL HYDROCHLORIDE
  5. SEROQUEL [Concomitant]
     Active Substance: QUETIAPINE FUMARATE

REACTIONS (18)
  - Product communication issue [None]
  - Malaise [None]
  - Hypophagia [None]
  - Withdrawal syndrome [None]
  - Panic attack [None]
  - Tachycardia [None]
  - Chest pain [None]
  - Hallucination [None]
  - Hyperhidrosis [None]
  - Tremor [None]
  - Fear [None]
  - Tremor [None]
  - Vertigo [None]
  - Insomnia [None]
  - Quality of life decreased [None]
  - Bedridden [None]
  - Agoraphobia [None]
  - Impaired work ability [None]

NARRATIVE: CASE EVENT DATE: 20220609
